FAERS Safety Report 4285898-2 (Version None)
Quarter: 2004Q1

REPORT INFORMATION
  Report Type: 
  Country: None (occurrence: None)
  Receive Date: 20040203
  Receipt Date: 20040123
  Transmission Date: 20041129
  Serious: Yes (Other)
  Sender: FDA-Public Use
  Company Number: HQWYE859322DEC03

PATIENT
  Age: 66 Year
  Sex: Male

DRUGS (10)
  1. CORDARONE [Suspect]
     Indication: ATRIAL FIBRILLATION
     Dosage: 200 MG 1X PER 1 DAY
     Dates: start: 20010101, end: 20011001
  2. CORDARONE [Suspect]
     Indication: ATRIAL FIBRILLATION
     Dosage: 200 MG 1X PER 1 DAY
     Dates: start: 20020701, end: 20020801
  3. NEXIUM [Concomitant]
  4. LIPITOR [Concomitant]
  5. PAROXETINE HCL [Concomitant]
  6. PERSANTINE [Concomitant]
  7. IMOVANE (ZOPICLONE) [Concomitant]
  8. ALLOPURINOL [Concomitant]
  9. APROVEL (IRBESARTAN) [Concomitant]
  10. MOBIC [Concomitant]

REACTIONS (6)
  - ALCOHOL POISONING [None]
  - ATRIAL FIBRILLATION [None]
  - BACK PAIN [None]
  - DEMYELINATING POLYNEUROPATHY [None]
  - DRUG TOXICITY [None]
  - PARAESTHESIA [None]
